FAERS Safety Report 4742294-9 (Version None)
Quarter: 2005Q3

REPORT INFORMATION
  Report Type: 
  Country: None (occurrence: None)
  Receive Date: 20050811
  Receipt Date: 20050404
  Transmission Date: 20060218
  Serious: No
  Sender: FDA-Public Use
  Company Number: US-GLAXOSMITHKLINE-A0552612A

PATIENT
  Age: 57 Year
  Sex: Female

DRUGS (3)
  1. PAXIL CR [Suspect]
     Indication: DEPRESSION
     Dosage: 25MG PER DAY
     Route: 048
     Dates: start: 20050201, end: 20050201
  2. PAXIL [Concomitant]
     Dosage: 20MG UNKNOWN
     Route: 048
  3. ESTROGEN PATCH [Concomitant]

REACTIONS (1)
  - ANXIETY [None]
